FAERS Safety Report 25127765 (Version 6)
Quarter: 2025Q3

REPORT INFORMATION
  Report Type: Report from Study
  Country: US (occurrence: US)
  Receive Date: 20250327
  Receipt Date: 20250917
  Transmission Date: 20251020
  Serious: Yes (Hospitalization)
  Sender: TAKEDA
  Company Number: US-TAKEDA-2025TUS025038

PATIENT
  Age: 81 Year
  Sex: Female

DRUGS (17)
  1. IXAZOMIB [Suspect]
     Active Substance: IXAZOMIB
     Indication: Acute myeloid leukaemia
  2. IXAZOMIB [Suspect]
     Active Substance: IXAZOMIB
     Indication: Plasma cell myeloma
  3. IXAZOMIB [Suspect]
     Active Substance: IXAZOMIB
     Dosage: 3 MILLIGRAM, 1/WEEK
  4. IXAZOMIB [Suspect]
     Active Substance: IXAZOMIB
  5. IXAZOMIB [Suspect]
     Active Substance: IXAZOMIB
     Dosage: 3 MILLIGRAM, 1/WEEK
  6. IXAZOMIB [Suspect]
     Active Substance: IXAZOMIB
  7. POMALYST [Suspect]
     Active Substance: POMALIDOMIDE
     Indication: Product used for unknown indication
  8. AMLODIPINE [Concomitant]
     Active Substance: AMLODIPINE BESYLATE
  9. ASPIRIN [Concomitant]
     Active Substance: ASPIRIN
  10. DEXAMETHASONE [Concomitant]
     Active Substance: DEXAMETHASONE
  11. GLIMEPIRIDE [Concomitant]
     Active Substance: GLIMEPIRIDE
  12. LEVOTHYROXINE [Concomitant]
     Active Substance: LEVOTHYROXINE
  13. LOSARTAN [Concomitant]
     Active Substance: LOSARTAN
  14. OXYCODONE AND ACETAMINOPHEN [Concomitant]
     Active Substance: ACETAMINOPHEN\OXYCODONE HYDROCHLORIDE
  15. FILGRASTIM [Concomitant]
     Active Substance: FILGRASTIM
  16. MEGESTROL [Concomitant]
     Active Substance: MEGESTROL
  17. NEUPOGEN [Concomitant]
     Active Substance: FILGRASTIM

REACTIONS (8)
  - Blood potassium decreased [Not Recovered/Not Resolved]
  - Alopecia [Not Recovered/Not Resolved]
  - COVID-19 [Unknown]
  - White blood cell count decreased [Not Recovered/Not Resolved]
  - Fatigue [Not Recovered/Not Resolved]
  - Asthenia [Unknown]
  - Diarrhoea [Unknown]
  - Nausea [Recovered/Resolved]

NARRATIVE: CASE EVENT DATE: 20250308
